FAERS Safety Report 22067163 (Version 1)
Quarter: 2023Q1

REPORT INFORMATION
  Report Type: Report from Study
  Country: US (occurrence: US)
  Receive Date: 20230307
  Receipt Date: 20230307
  Transmission Date: 20230418
  Serious: Yes (Other)
  Sender: FDA-Public Use
  Company Number: US-ABBVIE-4327916

PATIENT
  Sex: Male

DRUGS (2)
  1. SKYRIZI [Suspect]
     Active Substance: RISANKIZUMAB-RZAA
     Indication: Psoriatic arthropathy
     Route: 058
     Dates: start: 20230125
  2. SKYRIZI [Suspect]
     Active Substance: RISANKIZUMAB-RZAA
     Indication: Psoriasis

REACTIONS (8)
  - Knee arthroplasty [Unknown]
  - Pain [Unknown]
  - Internal fixation of spine [Unknown]
  - Drug ineffective [Unknown]
  - Hepatomegaly [Recovering/Resolving]
  - Weight increased [Unknown]
  - Psoriatic arthropathy [Unknown]
  - Spinal operation [Unknown]
